FAERS Safety Report 8580568-4 (Version None)
Quarter: 2012Q3

REPORT INFORMATION
  Report Type: 
  Country: None (occurrence: None)
  Receive Date: 20120808
  Receipt Date: 20120507
  Transmission Date: 20120928
  Serious: Yes (Other)
  Sender: FDA-Public Use
  Company Number: PHEH2012US015284

PATIENT
  Age: 52 Year
  Sex: Female
  Weight: 72.575 kg

DRUGS (1)
  1. DIOVAN HCT [Suspect]
     Dosage: 1 DF(160 MG VALS/ 12.5MG HCT)

REACTIONS (3)
  - ASTHMA [None]
  - HYPERSENSITIVITY [None]
  - SINUS DISORDER [None]
